FAERS Safety Report 26208755 (Version 1)
Quarter: 2025Q4

REPORT INFORMATION
  Report Type: Spontaneous
  Country: US (occurrence: None)
  Receive Date: 20251228
  Receipt Date: 20251228
  Transmission Date: 20260118
  Serious: Yes (Hospitalization)
  Sender: FDA-CTU
  Company Number: None

PATIENT
  Age: 24 Year
  Sex: Female
  Weight: 58.5 kg

DRUGS (1)
  1. FLUCONAZOLE [Suspect]
     Active Substance: FLUCONAZOLE
     Indication: Fungal infection
     Dosage: OTHER FREQUENCY : ONE TIME PILL;
     Route: 048
     Dates: start: 20250112, end: 20250112

REACTIONS (1)
  - Fixed eruption [None]

NARRATIVE: CASE EVENT DATE: 20250112
